FAERS Safety Report 9660338 (Version 1)
Quarter: 2013Q4

REPORT INFORMATION
  Report Type: Spontaneous
  Country: US (occurrence: US)
  Receive Date: 20131031
  Receipt Date: 20131031
  Transmission Date: 20140711
  Serious: Yes (Hospitalization, Other)
  Sender: FDA-Public Use
  Company Number: US-NAPPMUNDI-USA-2011-0073409

PATIENT
  Sex: Female

DRUGS (1)
  1. OXYCONTIN TABLETS [Suspect]
     Indication: DRUG ABUSE

REACTIONS (11)
  - Overdose [Recovered/Resolved]
  - Substance abuse [Recovered/Resolved]
  - Coma [Recovered/Resolved]
  - Loss of consciousness [Recovered/Resolved]
  - Dyspnoea [Recovered/Resolved]
  - Breast swelling [Recovered/Resolved]
  - Vulvovaginal swelling [Recovered/Resolved]
  - Contusion [Recovered/Resolved]
  - Multiple injuries [Recovered/Resolved]
  - Victim of crime [Recovered/Resolved]
  - Amnesia [Not Recovered/Not Resolved]
